FAERS Safety Report 5751291-6 (Version None)
Quarter: 2008Q2

REPORT INFORMATION
  Report Type: 
  Country: None (occurrence: None)
  Receive Date: 20080528
  Receipt Date: 20080516
  Transmission Date: 20081010
  Serious: Yes (Other)
  Sender: FDA-Public Use
  Company Number: US-PFIZER INC-2008035337

PATIENT
  Sex: Female
  Weight: 45.8 kg

DRUGS (5)
  1. CHANTIX [Suspect]
     Indication: SMOKING CESSATION THERAPY
     Route: 048
  2. LORTAB [Concomitant]
     Indication: TOOTH DISORDER
     Route: 048
  3. XOPENEX [Concomitant]
     Indication: ASTHMA
     Route: 055
  4. OPIOIDS [Concomitant]
  5. BENZODIAZEPINE DERIVATIVES [Concomitant]

REACTIONS (5)
  - FEELING JITTERY [None]
  - HEART RATE INCREASED [None]
  - INTENTIONAL DRUG MISUSE [None]
  - TOOTH ABSCESS [None]
  - TOOTHACHE [None]
